FAERS Safety Report 10078235 (Version 3)
Quarter: 2014Q3

REPORT INFORMATION
  Report Type: Spontaneous
  Country: AU (occurrence: AU)
  Receive Date: 20140415
  Receipt Date: 20140925
  Transmission Date: 20150326
  Serious: Yes (Other)
  Sender: FDA-Public Use
  Company Number: AU-009507513-1404AUS007191

PATIENT
  Sex: Male

DRUGS (1)
  1. ATOZET COMPOSITE PACK [Suspect]
     Active Substance: ATORVASTATIN CALCIUM\EZETIMIBE
     Route: 048

REACTIONS (1)
  - Immune thrombocytopenic purpura [Unknown]
